FAERS Safety Report 9924628 (Version 1)
Quarter: 2014Q1

REPORT INFORMATION
  Report Type: Spontaneous
  Country: FR (occurrence: FR)
  Receive Date: 20140226
  Receipt Date: 20140226
  Transmission Date: 20141002
  Serious: Yes (Other)
  Sender: FDA-Public Use
  Company Number: FR-JNJFOC-20140211279

PATIENT
  Age: 77 Year
  Sex: Male

DRUGS (7)
  1. ZYTIGA [Suspect]
     Indication: PROSTATE CANCER
     Route: 048
     Dates: start: 201307
  2. SOLUPRED [Concomitant]
     Route: 065
  3. CACIT D3 [Concomitant]
     Route: 065
  4. DECAPEPTYL [Concomitant]
     Route: 065
  5. SILDENAFIL [Concomitant]
     Route: 065
  6. SOTALEX [Concomitant]
     Indication: HYPERTENSION
     Route: 065
  7. AMLOR [Concomitant]
     Indication: HYPERTENSION
     Route: 065

REACTIONS (1)
  - Amyotrophy [Unknown]
